FAERS Safety Report 16326703 (Version 3)
Quarter: 2019Q4

REPORT INFORMATION
  Report Type: Spontaneous
  Country: DE (occurrence: DE)
  Receive Date: 20190517
  Receipt Date: 20191105
  Transmission Date: 20200122
  Serious: Yes (Other)
  Sender: FDA-Public Use
  Company Number: DE-SANOFI-AVENTIS-2011SA020661

PATIENT
  Sex: Male

DRUGS (6)
  1. SIMVASTATIN. [Concomitant]
     Active Substance: SIMVASTATIN
     Indication: PRODUCT USED FOR UNKNOWN INDICATION
     Dosage: 20 MG,UNK
     Route: 065
  2. NEXIUM I.V. [Concomitant]
     Active Substance: ESOMEPRAZOLE SODIUM
     Indication: PRODUCT USED FOR UNKNOWN INDICATION
     Dosage: 20 MG,Q3D
     Route: 065
  3. MULTAQ [Suspect]
     Active Substance: DRONEDARONE
     Indication: ATRIAL FIBRILLATION
     Dosage: 400 MG,UNK
     Route: 048
     Dates: start: 201012, end: 201603
  4. COAPROVEL [Concomitant]
     Active Substance: HYDROCHLOROTHIAZIDE\IRBESARTAN
     Indication: PRODUCT USED FOR UNKNOWN INDICATION
     Dosage: UNK UNK,UNK
     Route: 065
  5. LACTASE [Concomitant]
     Active Substance: LACTASE
     Indication: PRODUCT USED FOR UNKNOWN INDICATION
     Dosage: UNK UNK,UNK
     Route: 065
  6. ACETYLSALICYLIC ACID [Concomitant]
     Active Substance: ASPIRIN
     Indication: PRODUCT USED FOR UNKNOWN INDICATION
     Dosage: 100 MG,UNK
     Route: 065

REACTIONS (13)
  - Erythema [Unknown]
  - Systemic lupus erythematosus [Unknown]
  - Drug ineffective [Not Recovered/Not Resolved]
  - Urticaria [Unknown]
  - Extrasystoles [Recovered/Resolved]
  - Maculopathy [Unknown]
  - Dissociation [Recovered/Resolved]
  - Incorrect product administration duration [Unknown]
  - Drug tolerance [Unknown]
  - Acute febrile neutrophilic dermatosis [Unknown]
  - Atrial fibrillation [Not Recovered/Not Resolved]
  - Skin reaction [Unknown]
  - Pseudolymphoma [Unknown]

NARRATIVE: CASE EVENT DATE: 20110125
